FAERS Safety Report 8505327-X (Version None)
Quarter: 2012Q3

REPORT INFORMATION
  Report Type: 
  Country: None (occurrence: None)
  Receive Date: 20120712
  Receipt Date: 20120703
  Transmission Date: 20120928
  Serious: Yes (Other)
  Sender: FDA-Public Use
  Company Number: US-PFIZER INC-2012159852

PATIENT
  Sex: Female
  Weight: 66.213 kg

DRUGS (3)
  1. FOLIC ACID [Concomitant]
     Dosage: UNK
  2. ESTRING [Suspect]
     Dosage: UNK
     Route: 067
  3. ESTRING [Suspect]
     Indication: VAGINAL INFLAMMATION
     Dosage: 2 MG, EVERY 3 MONTHS
     Route: 067
     Dates: start: 20001001

REACTIONS (7)
  - VULVOVAGINAL PRURITUS [None]
  - CHRONIC LYMPHOCYTIC LEUKAEMIA [None]
  - CYSTITIS [None]
  - VULVOVAGINAL SWELLING [None]
  - VULVOVAGINAL BURNING SENSATION [None]
  - URINARY TRACT INFECTION [None]
  - VULVOVAGINAL DISCOMFORT [None]
